FAERS Safety Report 12176112 (Version 1)
Quarter: 2016Q1

REPORT INFORMATION
  Report Type: Spontaneous
  Country: TW (occurrence: TW)
  Receive Date: 20160314
  Receipt Date: 20160314
  Transmission Date: 20160526
  Serious: Yes (Other)
  Sender: FDA-Public Use
  Company Number: CHPA2016TW002996

PATIENT
  Age: 31 Month
  Sex: Male

DRUGS (5)
  1. ACETAMINOPHEN (PARACETAMOL) [Suspect]
     Active Substance: ACETAMINOPHEN
     Indication: OROPHARYNGEAL PAIN
  2. ACETAMINOPHEN (PARACETAMOL) [Suspect]
     Active Substance: ACETAMINOPHEN
     Indication: PYREXIA
     Route: 065
  3. DICLOFENAC [Suspect]
     Active Substance: DICLOFENAC
     Indication: PYREXIA
     Dosage: 25 MG, QD
     Route: 065
  4. CEPHALEXIN. [Suspect]
     Active Substance: CEPHALEXIN
     Indication: PYREXIA
  5. CEPHALEXIN. [Suspect]
     Active Substance: CEPHALEXIN
     Indication: OROPHARYNGEAL PAIN
     Route: 065

REACTIONS (4)
  - Abdominal distension [Recovered/Resolved]
  - Large intestine perforation [Recovered/Resolved]
  - Abdominal pain [Recovered/Resolved]
  - Abdominal tenderness [Recovered/Resolved]
